FAERS Safety Report 9807420 (Version 1)
Quarter: 2014Q1

REPORT INFORMATION
  Report Type: Spontaneous
  Country: US (occurrence: US)
  Receive Date: 20140110
  Receipt Date: 20140110
  Transmission Date: 20141002
  Serious: No
  Sender: FDA-Public Use
  Company Number: US-TARO-2013P1019779

PATIENT
  Age: 80 Year
  Sex: Female
  Weight: 72.58 kg

DRUGS (5)
  1. TRIAMCINOLONE ACETONIDE [Suspect]
     Route: 061
     Dates: start: 20130906, end: 201309
  2. NIACIN [Concomitant]
  3. PROPAFENONE [Concomitant]
  4. DILTIAZEM [Concomitant]
  5. DIGOXIN [Concomitant]

REACTIONS (2)
  - Drug ineffective [Not Recovered/Not Resolved]
  - Pruritus [Recovered/Resolved]
